FAERS Safety Report 6302783-2 (Version None)
Quarter: 2009Q3

REPORT INFORMATION
  Report Type: 
  Country: None (occurrence: None)
  Receive Date: 20090810
  Receipt Date: 20090710
  Transmission Date: 20100115
  Serious: No
  Sender: FDA-Public Use
  Company Number: US-BAYER-200912327BCC

PATIENT
  Age: 39 Year
  Sex: Female
  Weight: 100 kg

DRUGS (2)
  1. ALEVE (CAPLET) [Suspect]
     Indication: EXOSTOSIS
     Route: 048
  2. ALEVE (CAPLET) [Suspect]
     Dosage: TOTAL DAILY DOSE: 440 MG  UNIT DOSE: 220 MG
     Route: 048
     Dates: start: 20090710

REACTIONS (10)
  - FEELING HOT [None]
  - GENERALISED ERYTHEMA [None]
  - HYPERSENSITIVITY [None]
  - OCULAR HYPERAEMIA [None]
  - OEDEMA PERIPHERAL [None]
  - PALPITATIONS [None]
  - PANIC REACTION [None]
  - PRURITUS [None]
  - URTICARIA [None]
  - VISION BLURRED [None]
